FAERS Safety Report 20105675 (Version 1)
Quarter: 2021Q4

REPORT INFORMATION
  Report Type: Spontaneous
  Country: US (occurrence: US)
  Receive Date: 20211124
  Receipt Date: 20211124
  Transmission Date: 20220303
  Serious: No
  Sender: FDA-Public Use
  Company Number: US-ELI_LILLY_AND_COMPANY-US202111009275

PATIENT
  Sex: Male

DRUGS (1)
  1. BASAGLAR [Suspect]
     Active Substance: INSULIN GLARGINE
     Indication: Product used for unknown indication
     Dosage: 2 U, UNKNOWN
     Route: 065
     Dates: start: 202111

REACTIONS (5)
  - Illness [Unknown]
  - Faeces hard [Unknown]
  - Tremor [Unknown]
  - Dysphemia [Unknown]
  - Product dose omission issue [Unknown]
